FAERS Safety Report 5926939-3 (Version None)
Quarter: 2008Q4

REPORT INFORMATION
  Report Type: 
  Country: None (occurrence: None)
  Receive Date: 20081021
  Receipt Date: 20081021
  Transmission Date: 20090506
  Serious: Yes (Death)
  Sender: FDA-Public Use
  Company Number: None

PATIENT
  Age: 74 Year
  Sex: Male
  Weight: 90.7194 kg

DRUGS (1)
  1. LOVENOX [Suspect]
     Indication: THROMBOSIS PROPHYLAXIS
     Dosage: 40MG ONCE A DAY SQ
     Route: 058
     Dates: start: 20080418, end: 20080418

REACTIONS (2)
  - ABDOMINAL DISCOMFORT [None]
  - PRODUCT CONTAMINATION [None]
